FAERS Safety Report 9345752 (Version 2)
Quarter: 2013Q2

REPORT INFORMATION
  Report Type: Spontaneous
  Country: US (occurrence: US)
  Receive Date: 20130613
  Receipt Date: 20130628
  Transmission Date: 20140414
  Serious: Yes (Other)
  Sender: FDA-Public Use
  Company Number: US-PFIZER INC-2013174994

PATIENT
  Age: 56 Year
  Sex: Female

DRUGS (2)
  1. XELJANZ [Suspect]
     Indication: RHEUMATOID ARTHRITIS
     Dosage: 5 MG (ONE TABLET) TWICE A DAY
     Route: 048
     Dates: start: 201303
  2. PREDNISONE [Concomitant]
     Dosage: 10-15MG

REACTIONS (1)
  - Rheumatoid arthritis [Not Recovered/Not Resolved]
